FAERS Safety Report 5920170-3 (Version None)
Quarter: 2008Q4

REPORT INFORMATION
  Report Type: 
  Country: None (occurrence: None)
  Receive Date: 20081015
  Receipt Date: 20081015
  Transmission Date: 20090506
  Serious: Yes (Life-Threatening)
  Sender: FDA-Public Use
  Company Number: None

PATIENT
  Sex: Female
  Weight: 73.0291 kg

DRUGS (1)
  1. RECLAST [Suspect]
     Indication: OSTEOPOROSIS
     Dosage: 5 MG Q YR IV DRIP
     Route: 041
     Dates: start: 20081013, end: 20081013

REACTIONS (2)
  - BLOOD PRESSURE INCREASED [None]
  - HEART RATE DECREASED [None]
